FAERS Safety Report 7078757-3 (Version None)
Quarter: 2010Q4

REPORT INFORMATION
  Report Type: 
  Country: None (occurrence: None)
  Receive Date: 20101102
  Receipt Date: 20101021
  Transmission Date: 20110411
  Serious: Yes (Hospitalization, Other)
  Sender: FDA-Public Use
  Company Number: US-PFIZER INC-2010098782

PATIENT
  Sex: Female
  Weight: 72.562 kg

DRUGS (1)
  1. GEODON [Suspect]
     Indication: BIPOLAR DISORDER
     Dosage: UNK, 3X/DAY
     Route: 048
     Dates: start: 20100401, end: 20100401

REACTIONS (4)
  - CONFUSIONAL STATE [None]
  - FALL [None]
  - NAUSEA [None]
  - RESPIRATORY ARREST [None]
